FAERS Safety Report 14685372 (Version 3)
Quarter: 2018Q2

REPORT INFORMATION
  Report Type: Report from Study
  Country: CO (occurrence: CO)
  Receive Date: 20180327
  Receipt Date: 20180502
  Transmission Date: 20180711
  Serious: Yes (Hospitalization, Other)
  Sender: FDA-Public Use
  Company Number: CO-ASTELLAS-2018US001451

PATIENT
  Age: 45 Year
  Sex: Female

DRUGS (2)
  1. AVASTIN [Suspect]
     Active Substance: BEVACIZUMAB
     Indication: LUNG NEOPLASM MALIGNANT
     Dosage: 800 MG, EVERY 3 WEEKS (ONCE IN 21 DAYS )
     Route: 042
     Dates: start: 20160919
  2. ERLOTINIB [Suspect]
     Active Substance: ERLOTINIB
     Indication: LUNG NEOPLASM MALIGNANT
     Dosage: 150 MG, ONCE DAILY (4500 MG PER 30 DAYS)
     Route: 048
     Dates: start: 20150714

REACTIONS (32)
  - Dry skin [Recovered/Resolved]
  - Vomiting [Recovered/Resolved]
  - Arthralgia [Recovered/Resolved]
  - Muscle rigidity [Recovered/Resolved]
  - Cough [Recovered/Resolved]
  - Infection [Recovered/Resolved]
  - Dermatitis [Recovered/Resolved]
  - Palmar-plantar erythrodysaesthesia syndrome [Recovered/Resolved]
  - Folliculitis [Recovered/Resolved]
  - Feeling hot [Recovered/Resolved]
  - Transaminases increased [Recovered/Resolved]
  - Urticaria [Not Recovered/Not Resolved]
  - Lung infiltration [Not Recovered/Not Resolved]
  - Alopecia [Recovered/Resolved]
  - Gingival bleeding [Recovered/Resolved]
  - Nail disorder [Recovered/Resolved with Sequelae]
  - Acne [Recovered/Resolved]
  - Rash [Recovered/Resolved]
  - Nausea [Recovered/Resolved]
  - Headache [Recovered/Resolved]
  - Vomiting [Recovered/Resolved]
  - Off label use [Unknown]
  - Pain in jaw [Recovered/Resolved]
  - Abdominal pain upper [Recovered/Resolved with Sequelae]
  - Asthenia [Recovered/Resolved]
  - Lung consolidation [Recovered/Resolved]
  - Impaired healing [Recovered/Resolved]
  - Furuncle [Recovered/Resolved]
  - Epistaxis [Recovered/Resolved]
  - Diarrhoea [Recovered/Resolved]
  - Pneumonitis [Recovered/Resolved]
  - Intentional product use issue [Unknown]

NARRATIVE: CASE EVENT DATE: 201508
